FAERS Safety Report 8375028-X (Version None)
Quarter: 2012Q2

REPORT INFORMATION
  Report Type: 
  Country: None (occurrence: None)
  Receive Date: 20120521
  Receipt Date: 20120521
  Transmission Date: 20120825
  Serious: Yes (Other)
  Sender: FDA-Public Use
  Company Number: US-PFIZER INC-2012122293

PATIENT
  Sex: Female
  Weight: 65.76 kg

DRUGS (2)
  1. CHANTIX [Suspect]
     Indication: SMOKING CESSATION THERAPY
     Dosage: 0.5 MG, DAILY
     Dates: start: 20120101
  2. CHANTIX [Suspect]
     Dosage: 0.5 MG, UNK
     Dates: start: 20120101, end: 20120301

REACTIONS (9)
  - PARANOIA [None]
  - ANGER [None]
  - FEELING ABNORMAL [None]
  - IMPAIRED WORK ABILITY [None]
  - SLEEP DISORDER [None]
  - MOOD SWINGS [None]
  - CONFUSIONAL STATE [None]
  - DEPRESSION [None]
  - AGITATION [None]
